FAERS Safety Report 17338953 (Version 1)
Quarter: 2020Q1

REPORT INFORMATION
  Report Type: Spontaneous
  Country: US (occurrence: US)
  Receive Date: 20200114
  Receipt Date: 20200114
  Transmission Date: 20200409
  Serious: No
  Sender: FDA-Public Use
  Company Number: None

PATIENT
  Age: 76 Year
  Sex: Female

DRUGS (1)
  1. IMATINIB MES TAB 100MG [Suspect]
     Active Substance: IMATINIB MESYLATE
     Route: 048
     Dates: start: 201901

REACTIONS (4)
  - Nasopharyngitis [None]
  - Corneal disorder [None]
  - Swelling [None]
  - Post procedural complication [None]

NARRATIVE: CASE EVENT DATE: 20200114
